FAERS Safety Report 15008538 (Version 4)
Quarter: 2019Q1

REPORT INFORMATION
  Report Type: Report from Study
  Country: US (occurrence: US)
  Receive Date: 20180613
  Receipt Date: 20190117
  Transmission Date: 20190417
  Serious: Yes (Hospitalization)
  Sender: FDA-Public Use
  Company Number: US-ACTELION-A-US2017-153607

PATIENT
  Age: 77 Year
  Sex: Female

DRUGS (18)
  1. OPSUMIT [Suspect]
     Active Substance: MACITENTAN
     Indication: PULMONARY ARTERIAL HYPERTENSION
     Dosage: 10 MG, QD
     Route: 048
     Dates: start: 20161021
  2. GABAPENTIN. [Concomitant]
     Active Substance: GABAPENTIN
  3. GLIMEPIRIDE. [Concomitant]
     Active Substance: GLIMEPIRIDE
  4. COUMADIN [Concomitant]
     Active Substance: WARFARIN SODIUM
  5. CARVEDILOL. [Concomitant]
     Active Substance: CARVEDILOL
  6. DIGOXIN. [Concomitant]
     Active Substance: DIGOXIN
  7. LASIX [Concomitant]
     Active Substance: FUROSEMIDE
  8. ENALAPRIL [Concomitant]
     Active Substance: ENALAPRIL
  9. IPRATROPIUM [Concomitant]
     Active Substance: IPRATROPIUM
  10. LUTEIN [Concomitant]
     Active Substance: LUTEIN
  11. LEVOTHYROXINE. [Concomitant]
     Active Substance: LEVOTHYROXINE
  12. ZANTAC [Concomitant]
     Active Substance: RANITIDINE HYDROCHLORIDE
  13. FERROUS SULFATE. [Concomitant]
     Active Substance: FERROUS SULFATE
  14. VITAMIN B12 [Concomitant]
     Active Substance: CYANOCOBALAMIN
  15. OPSUMIT [Suspect]
     Active Substance: MACITENTAN
     Dosage: UNK
     Route: 048
  16. MEDROL [Concomitant]
     Active Substance: METHYLPREDNISOLONE
  17. VITAMIN D3 [Concomitant]
     Active Substance: CHOLECALCIFEROL
  18. FOLIC ACID. [Concomitant]
     Active Substance: FOLIC ACID

REACTIONS (11)
  - Cough [Not Recovered/Not Resolved]
  - Head discomfort [Not Recovered/Not Resolved]
  - Fall [Unknown]
  - Cataract operation [Recovered/Resolved]
  - Pain in extremity [Recovering/Resolving]
  - Joint injury [Unknown]
  - Dyspnoea [Recovering/Resolving]
  - Anticoagulation drug level below therapeutic [Not Recovered/Not Resolved]
  - Pyrexia [Recovered/Resolved]
  - Influenza like illness [Recovered/Resolved]
  - Pain [Recovering/Resolving]

NARRATIVE: CASE EVENT DATE: 20170503
